FAERS Safety Report 9717397 (Version 1)
Quarter: 2013Q4

REPORT INFORMATION
  Report Type: Spontaneous
  Country: JP (occurrence: JP)
  Receive Date: 20131127
  Receipt Date: 20131127
  Transmission Date: 20140711
  Serious: Yes (Hospitalization, Other)
  Sender: FDA-Public Use
  Company Number: JP-SPECTRUM PHARMACEUTICALS, INC.-13-F-JP-00300

PATIENT
  Age: 73 Year
  Sex: Male
  Weight: 59.8 kg

DRUGS (4)
  1. FLUOROURACIL [Suspect]
     Indication: OESOPHAGEAL SQUAMOUS CELL CARCINOMA
     Dosage: 700 MG/BODY MASS INDEX, PER DAY ON DAYS 1-4 AND 29-32
     Route: 042
  2. CISPLATIN [Suspect]
     Indication: OESOPHAGEAL SQUAMOUS CELL CARCINOMA
     Dosage: 70 MG/M2/DAY, ON DAY 1 AND 29
     Route: 042
  3. DEXAMETHASONE [Concomitant]
     Indication: ANTIEMETIC SUPPORTIVE CARE
     Dosage: 6.6 MG, ON INFUSION DAYS
     Route: 042
  4. DEXAMETHASONE [Concomitant]
     Dosage: 8 MG, ON THREE SUBSEQUENT DAYS
     Route: 048

REACTIONS (4)
  - Diabetic hyperosmolar coma [Unknown]
  - Coma [Recovered/Resolved]
  - Confusional state [Unknown]
  - Malaise [Unknown]
